FAERS Safety Report 16447300 (Version 1)
Quarter: 2019Q2

REPORT INFORMATION
  Report Type: Report from Study
  Country: KR (occurrence: KR)
  Receive Date: 20190618
  Receipt Date: 20190618
  Transmission Date: 20190711
  Serious: Yes (Hospitalization)
  Sender: FDA-Public Use
  Company Number: KR-B.I. PHARMACEUTICALS,INC./RIDGEFIELD-2019-BI-026071

PATIENT
  Age: 57 Year
  Sex: Male
  Weight: 83 kg

DRUGS (6)
  1. CARBOPLATIN W/PACLITAXEL [Concomitant]
     Active Substance: CARBOPLATIN\PACLITAXEL
     Indication: DRUG THERAPY
     Dosage: NO OF COURSES: 4
     Route: 065
     Dates: start: 20170426
  2. PRITOR [Concomitant]
     Indication: HYPERTENSION
     Route: 065
     Dates: start: 20170323
  3. URSA [Concomitant]
     Active Substance: URSODIOL
     Indication: CHRONIC HEPATITIS B
     Route: 065
     Dates: start: 20181009
  4. PENNEL [Concomitant]
     Indication: CHRONIC HEPATITIS B
     Route: 065
     Dates: start: 20181009
  5. GILOTRIF [Suspect]
     Active Substance: AFATINIB
     Indication: NON-SMALL CELL LUNG CANCER
     Route: 048
     Dates: start: 20181011, end: 20181021
  6. GILOTRIF [Suspect]
     Active Substance: AFATINIB
     Route: 048
     Dates: start: 20181024, end: 20181124

REACTIONS (2)
  - Enterocolitis [Recovered/Resolved]
  - Enterocolitis [Recovered/Resolved]

NARRATIVE: CASE EVENT DATE: 20181020
